FAERS Safety Report 18565989 (Version 1)
Quarter: 2020Q4

REPORT INFORMATION
  Report Type: Report from Study
  Country: US (occurrence: US)
  Receive Date: 20201201
  Receipt Date: 20201201
  Transmission Date: 20210114
  Serious: Yes (Other)
  Sender: FDA-Public Use
  Company Number: US-ASTRAZENECA-2020SF40758

PATIENT
  Age: 53 Year
  Sex: Female
  Weight: 63.5 kg

DRUGS (1)
  1. TAGRISSO [Suspect]
     Active Substance: OSIMERTINIB
     Indication: HEPATIC CANCER
     Route: 048
     Dates: start: 20191112, end: 20201028

REACTIONS (1)
  - Malignant neoplasm progression [Not Recovered/Not Resolved]
